FAERS Safety Report 9908010 (Version 2)
Quarter: 2014Q1

REPORT INFORMATION
  Report Type: Spontaneous
  Country: DE (occurrence: DE)
  Receive Date: 20140219
  Receipt Date: 20140219
  Transmission Date: 20141002
  Serious: Yes (Hospitalization)
  Sender: FDA-Public Use
  Company Number: DE-AMGEN-DEUSP2014006424

PATIENT
  Age: 70 Year
  Sex: Male

DRUGS (10)
  1. VECTIBIX [Suspect]
     Indication: COLORECTAL CANCER METASTATIC
     Dosage: 540 MG, Q2WK
     Route: 042
     Dates: start: 20130930
  2. VECTIBIX [Suspect]
     Dosage: UNK
     Route: 065
  3. VECTIBIX [Suspect]
     Dosage: UNK
     Route: 065
  4. VECTIBIX [Suspect]
     Dosage: UNK
     Route: 065
  5. VECTIBIX [Suspect]
     Dosage: UNK
     Route: 065
  6. FLUOROURACIL [Concomitant]
     Indication: COLORECTAL CANCER METASTATIC
     Dosage: UNK
     Route: 042
     Dates: start: 20130930
  7. FOLINIC ACID [Concomitant]
     Indication: COLORECTAL CANCER METASTATIC
     Dosage: UNK
     Route: 042
     Dates: start: 20130930
  8. IRINOTECAN [Concomitant]
     Indication: COLORECTAL CANCER METASTATIC
     Dosage: UNK
     Route: 042
     Dates: start: 20130930
  9. OXALIPLATIN [Concomitant]
     Indication: COLORECTAL CANCER METASTATIC
     Dosage: UNK
  10. CETUXIMAB [Concomitant]
     Indication: COLORECTAL CANCER METASTATIC
     Dosage: UNK

REACTIONS (4)
  - Stomatitis [Not Recovered/Not Resolved]
  - Dysphagia [Unknown]
  - Mucosal erosion [Unknown]
  - Mouth ulceration [Unknown]
